FAERS Safety Report 4749195-0 (Version None)
Quarter: 2005Q3

REPORT INFORMATION
  Report Type: 
  Country: None (occurrence: None)
  Receive Date: 20050812
  Receipt Date: 20050416
  Transmission Date: 20060218
  Serious: Yes (Other)
  Sender: FDA-Public Use
  Company Number: 400270

PATIENT
  Age: 49 Year
  Sex: Female

DRUGS (2)
  1. PEGASYS [Suspect]
     Indication: DRUG USE FOR UNKNOWN INDICATION
     Dosage: SUBCUTANEOUS
     Route: 058
     Dates: start: 20050312
  2. COPEGUS [Suspect]
     Indication: DRUG USE FOR UNKNOWN INDICATION
     Dosage: ORAL
     Route: 048
     Dates: start: 20050312

REACTIONS (20)
  - AGITATION [None]
  - ANGER [None]
  - ANXIETY [None]
  - ARTHRALGIA [None]
  - CRYING [None]
  - DECREASED APPETITE [None]
  - DIZZINESS [None]
  - DRY MOUTH [None]
  - DRY SKIN [None]
  - EYE SWELLING [None]
  - HYPOTRICHOSIS [None]
  - INCORRECT DOSE ADMINISTERED [None]
  - LYMPHADENOPATHY [None]
  - NAUSEA [None]
  - PALPITATIONS [None]
  - PLATELET COUNT DECREASED [None]
  - RASH [None]
  - RED BLOOD CELL COUNT DECREASED [None]
  - VARICES OESOPHAGEAL [None]
  - WHITE BLOOD CELL COUNT DECREASED [None]
